FAERS Safety Report 5088677-1 (Version None)
Quarter: 2006Q3

REPORT INFORMATION
  Report Type: 
  Country: None (occurrence: None)
  Receive Date: 20060822
  Receipt Date: 20060612
  Transmission Date: 20061208
  Serious: Yes (Hospitalization)
  Sender: FDA-Public Use
  Company Number: F03200600130

PATIENT
  Age: 56 Year
  Sex: Male
  Weight: 79.8331 kg

DRUGS (10)
  1. OXALIPLATIN - SOLUTION - 85 MG/M2 [Suspect]
     Indication: PANCREATIC NEOPLASM
     Dosage: . MG, 85 MG/M2 EVERY 2 WEEKS - INTRAVENOUS NOS
     Route: 042
     Dates: start: 20060530, end: 20060530
  2. BEVACIZUMAB - SOLUTION - 5 MG/KG [Suspect]
     Indication: PANCREATIC NEOPLASM
     Dosage: 400 MG, 5 MG/KG EVERY 2WEEKS - INTRAVENOUS NOS
     Route: 042
     Dates: start: 20060530, end: 20060530
  3. FLUOROURACIL [Suspect]
     Indication: PANCREATIC NEOPLASM
     Dosage: 800 MG+2400 MG, 400 MG/M2+200 MG/M2 EVERY 2 WEEKS - INTRAVENOUS NOS
     Route: 042
     Dates: start: 20060530, end: 20060530
  4. LEUCOVORIN CALCIUM [Suspect]
     Indication: PANCREATIC NEOPLASM
     Dosage: 400 MG, 200 MG/M2 EVERY 2 WEEKS - INTRAVENOUS NOS
     Route: 042
     Dates: start: 20060530, end: 20060530
  5. DEXAMETHASONE [Suspect]
     Indication: PANCREATIC NEOPLASM
     Dosage: 20 MG Q2W - INTRAVENOUS NOS
     Route: 042
     Dates: start: 20060530, end: 20060530
  6. LORAZEPAM [Suspect]
     Indication: PANCREATIC NEOPLASM
     Dosage: 1 MG Q2W - ORAL
     Route: 048
     Dates: start: 20060530, end: 20060530
  7. GRANISETRON  HCL [Suspect]
     Indication: PANCREATIC NEOPLASM
     Dosage: 800 MCG, 10 MCG/KG EVERY 2 WEEKS - INTRAVENOUS NOS
     Route: 042
     Dates: start: 20060530, end: 20060530
  8. ACETAMINOPHEN [Concomitant]
  9. LOPERAMIDE HYDROCHLORIDE [Concomitant]
  10. LORAZEPAM [Concomitant]

REACTIONS (1)
  - PYREXIA [None]
